FAERS Safety Report 9442983 (Version 1)
Quarter: 2013Q3

REPORT INFORMATION
  Report Type: Report from Study
  Country: US (occurrence: US)
  Receive Date: 20130806
  Receipt Date: 20130806
  Transmission Date: 20140515
  Serious: Yes (Hospitalization)
  Sender: FDA-Public Use
  Company Number: US-ACTELION-A-NJ2013-85976

PATIENT
  Age: 60 Year
  Sex: Female

DRUGS (4)
  1. TRACLEER [Suspect]
     Indication: PULMONARY ARTERIAL HYPERTENSION
     Dosage: UNK
     Route: 048
  2. VELETRI [Suspect]
     Indication: PULMONARY ARTERIAL HYPERTENSION
     Dosage: 45.94 NG/KG, PER MIN
     Route: 042
     Dates: start: 20120328
  3. SILDENAFIL [Concomitant]
  4. COUMADIN [Concomitant]

REACTIONS (9)
  - Pulmonary oedema [Recovered/Resolved]
  - Sepsis [Recovered/Resolved]
  - Device related infection [Unknown]
  - Body temperature increased [Recovered/Resolved]
  - Weight decreased [Unknown]
  - Decreased appetite [Unknown]
  - Transfusion [Unknown]
  - Haemoglobin decreased [Unknown]
  - Basedow^s disease [None]
